FAERS Safety Report 13672098 (Version 2)
Quarter: 2017Q3

REPORT INFORMATION
  Report Type: Spontaneous
  Country: JP (occurrence: JP)
  Receive Date: 20170620
  Receipt Date: 20170922
  Transmission Date: 20171127
  Serious: Yes (Other)
  Sender: FDA-Public Use
  Company Number: PHJP2017JP019825

PATIENT
  Age: 43 Year
  Sex: Male

DRUGS (2)
  1. TEGRETOL [Suspect]
     Active Substance: CARBAMAZEPINE
     Indication: PRODUCT USED FOR UNKNOWN INDICATION
     Dosage: 200 MG, UNK
     Route: 048
     Dates: start: 201510, end: 201511
  2. PABRON GOLD A [Suspect]
     Active Substance: ACETAMINOPHEN\CAFFEINE\CARBINOXAMINE MALEATE\DIHYDROCODEINE PHOSPHATE\GUAIFENESIN\LYSOZYME HYDROCHLORIDE\METHYLEPHEDRINE HYDROCHLORIDE, (+/-)-\RIBOFLAVIN\SULBUTIAMINE
     Indication: PRODUCT USED FOR UNKNOWN INDICATION
     Route: 048

REACTIONS (1)
  - Oculomucocutaneous syndrome [Unknown]
